FAERS Safety Report 19461332 (Version 1)
Quarter: 2021Q2

REPORT INFORMATION
  Report Type: Report from Study
  Country: IT (occurrence: IT)
  Receive Date: 20210625
  Receipt Date: 20210625
  Transmission Date: 20210717
  Serious: Yes (Hospitalization, Other)
  Sender: FDA-Public Use
  Company Number: IT-TEVA-2021-IT-1926081

PATIENT
  Age: 93 Year
  Sex: Female
  Weight: 52 kg

DRUGS (2)
  1. BENDAMUSTINE HYDROCHLORIDE. [Suspect]
     Active Substance: BENDAMUSTINE HYDROCHLORIDE
     Indication: LYMPHOPLASMACYTOID LYMPHOMA/IMMUNOCYTOMA REFRACTORY
     Dosage: TOTAL DOSE
     Route: 042
     Dates: start: 20210426, end: 20210426
  2. ALLOPURINOL. [Concomitant]
     Active Substance: ALLOPURINOL
     Indication: URATE NEPHROPATHY
     Route: 015

REACTIONS (3)
  - Anaemia [Recovered/Resolved with Sequelae]
  - Leukopenia [Recovered/Resolved with Sequelae]
  - Neutrophilia [Recovered/Resolved with Sequelae]

NARRATIVE: CASE EVENT DATE: 20210427
